FAERS Safety Report 5360085-5 (Version None)
Quarter: 2007Q2

REPORT INFORMATION
  Report Type: 
  Country: None (occurrence: None)
  Receive Date: 20070618
  Receipt Date: 20060829
  Transmission Date: 20071010
  Serious: No
  Sender: FDA-Public Use
  Company Number: US-ASTRAZENECA-2006UW17077

PATIENT
  Age: 63 Year
  Sex: Female
  Weight: 73 kg

DRUGS (2)
  1. FASLODEX [Suspect]
     Indication: BREAST CANCER
     Route: 030
     Dates: start: 20020101
  2. XELODA [Concomitant]

REACTIONS (9)
  - DIVERTICULUM [None]
  - DIZZINESS [None]
  - HYPOPITUITARISM [None]
  - HYPOTHYROIDISM [None]
  - INJECTION SITE IRRITATION [None]
  - MUSCULAR WEAKNESS [None]
  - NAUSEA [None]
  - PAIN [None]
  - SOCIAL PROBLEM [None]
